FAERS Safety Report 6333804-9 (Version None)
Quarter: 2009Q3

REPORT INFORMATION
  Report Type: 
  Country: None (occurrence: None)
  Receive Date: 20090829
  Receipt Date: 20090611
  Transmission Date: 20100115
  Serious: No
  Sender: FDA-Public Use
  Company Number: US-ABBOTT-09P-163-0579360-00

PATIENT
  Sex: Male
  Weight: 83.99 kg

DRUGS (5)
  1. SIMCOR [Suspect]
     Indication: HIGH DENSITY LIPOPROTEIN DECREASED
     Dosage: 500/20
     Dates: start: 20090519, end: 20090526
  2. SIMCOR [Suspect]
     Dosage: 1000/20
     Dates: start: 20090526
  3. ASPIRIN [Concomitant]
     Indication: VASCULAR GRAFT
  4. TYLENOL (CAPLET) [Concomitant]
     Indication: PAIN
  5. FLOMAX [Concomitant]
     Indication: DYSURIA

REACTIONS (3)
  - FEELING HOT [None]
  - RASH ERYTHEMATOUS [None]
  - SENSORY DISTURBANCE [None]
